FAERS Safety Report 10515575 (Version 1)
Quarter: 2014Q4

REPORT INFORMATION
  Report Type: Spontaneous
  Country: GB (occurrence: None)
  Receive Date: 20141009
  Receipt Date: 20141009
  Transmission Date: 20150528
  Serious: Yes (Death, Life-Threatening, Hospitalization, Other)
  Sender: FDA-Public Use
  Company Number: CL-587-2014

PATIENT
  Age: 22 Day
  Sex: Female
  Weight: 1.58 kg

DRUGS (4)
  1. OXACILLIN [Concomitant]
     Active Substance: OXACILLIN SODIUM
  2. FLUCONAZOLE UNK [Suspect]
     Active Substance: FLUCONAZOLE
     Indication: CANDIDA INFECTION
     Dosage: LOADING-UNK/10G/KG OD IV
     Route: 042
  3. FUROSEMIDE. [Concomitant]
     Active Substance: FUROSEMIDE
  4. IMMUNOGLOBULIN [Concomitant]
     Active Substance: HUMAN IMMUNOGLOBULIN G

REACTIONS (7)
  - Multi-organ failure [None]
  - Toxic epidermal necrolysis [None]
  - Mucous stools [None]
  - Haemochromatosis [None]
  - Acute prerenal failure [None]
  - Cardiac arrest [None]
  - Acinetobacter test positive [None]
